FAERS Safety Report 12891524 (Version 1)
Quarter: 2016Q4

REPORT INFORMATION
  Report Type: Spontaneous
  Country: None (occurrence: US)
  Receive Date: 20161025
  Receipt Date: 20161025
  Transmission Date: 20170207
  Serious: No
  Sender: FDA-Public Use
  Company Number: None

PATIENT
  Sex: Female

DRUGS (1)
  1. NEUPOGEN [Suspect]
     Active Substance: FILGRASTIM
     Dosage: 480MCG DAILY FOR 3 DAYS AFTER SQ
     Route: 058
     Dates: start: 20160813

REACTIONS (1)
  - Paraesthesia [None]
